FAERS Safety Report 14917883 (Version 1)
Quarter: 2018Q2

REPORT INFORMATION
  Report Type: Spontaneous
  Country: US (occurrence: US)
  Receive Date: 20180501
  Receipt Date: 20180501
  Transmission Date: 20180711
  Serious: No
  Sender: FDA-Public Use
  Company Number: None

PATIENT
  Age: 64 Year
  Sex: Female

DRUGS (26)
  1. SYNTHROID [Concomitant]
     Active Substance: LEVOTHYROXINE SODIUM
  2. MODAFINIL. [Concomitant]
     Active Substance: MODAFINIL
  3. ALLOPURINOL. [Concomitant]
     Active Substance: ALLOPURINOL
  4. ROSUVASTATIN. [Concomitant]
     Active Substance: ROSUVASTATIN
  5. BREO ELLIPTA INH [Concomitant]
  6. SERTRALINE [Concomitant]
     Active Substance: SERTRALINE HYDROCHLORIDE
  7. FUROSEMIDE. [Concomitant]
     Active Substance: FUROSEMIDE
  8. MONTELUKAST [Concomitant]
     Active Substance: MONTELUKAST SODIUM
  9. SPIRONOLACT [Concomitant]
     Active Substance: SPIRONOLACTONE
  10. CYCLOBENZAPR [Concomitant]
     Active Substance: CYCLOBENZAPRINE
  11. FLUTICASONE. [Concomitant]
     Active Substance: FLUTICASONE
  12. MULTIVITAMIN [Concomitant]
     Active Substance: VITAMINS
  13. OMEPRAZOLE. [Concomitant]
     Active Substance: OMEPRAZOLE
  14. NITROGLYCERN [Concomitant]
  15. CALCIUM [Concomitant]
     Active Substance: CALCIUM
  16. BACTRIM DS [Concomitant]
     Active Substance: SULFAMETHOXAZOLE\TRIMETHOPRIM
  17. VITAMIN A [Concomitant]
     Active Substance: VITAMIN A
  18. METOPROL TAR [Concomitant]
  19. ASPIRIN. [Concomitant]
     Active Substance: ASPIRIN
  20. PROLIA [Concomitant]
     Active Substance: DENOSUMAB
  21. ROPINIROLE. [Concomitant]
     Active Substance: ROPINIROLE
  22. MYRBETRIQ [Concomitant]
     Active Substance: MIRABEGRON
  23. AMPICILLIN [Concomitant]
     Active Substance: AMPICILLIN
  24. OCALIVA [Suspect]
     Active Substance: OBETICHOLIC ACID
     Indication: PRIMARY BILIARY CHOLANGITIS
     Dosage: ?          OTHER FREQUENCY:BIW MON + THURS;?
     Route: 048
     Dates: start: 20170416
  25. MIDODRINE [Concomitant]
     Active Substance: MIDODRINE
  26. WARFARIN [Concomitant]
     Active Substance: WARFARIN

REACTIONS (1)
  - Pleural effusion [None]

NARRATIVE: CASE EVENT DATE: 20180430
